FAERS Safety Report 7634931-6 (Version None)
Quarter: 2011Q3

REPORT INFORMATION
  Report Type: 
  Country: None (occurrence: None)
  Receive Date: 20110718
  Receipt Date: 20110704
  Transmission Date: 20111222
  Serious: Yes (Other)
  Sender: FDA-Public Use
  Company Number: 970577

PATIENT
  Age: 69 Year
  Sex: Female

DRUGS (6)
  1. TRIMETON [Concomitant]
  2. ZOFRAN [Concomitant]
  3. ZANTAC [Concomitant]
  4. CARBOPLATIN [Suspect]
     Indication: OVARIAN CANCER METASTATIC
     Dosage: 350 MG MILLIGRAM(S), INTRAVENOUS
     Route: 042
     Dates: start: 20110620, end: 20110620
  5. DEXAMETHASONE SODIUM PHOSPHATE [Concomitant]
  6. PACLITAXEL [Suspect]
     Indication: OVARIAN CANCER METASTATIC
     Dosage: 240 MG MILLIGRAM(S), INTRAVENOUS
     Route: 042
     Dates: start: 20110620, end: 20110620

REACTIONS (5)
  - BACK PAIN [None]
  - ERYTHEMA [None]
  - THROAT TIGHTNESS [None]
  - DYSPNOEA [None]
  - INFUSION RELATED REACTION [None]
